FAERS Safety Report 5903264-8 (Version None)
Quarter: 2008Q3

REPORT INFORMATION
  Report Type: 
  Country: None (occurrence: None)
  Receive Date: 20080926
  Receipt Date: 20080912
  Transmission Date: 20090109
  Serious: Yes (Other)
  Sender: FDA-Public Use
  Company Number: 2008SP002195

PATIENT
  Age: 2 Year
  Sex: Female

DRUGS (3)
  1. XOPENEX [Suspect]
     Indication: ASTHMA
     Dosage: INHALATION
  2. HORMONES AND RELATED AGENTS [Concomitant]
  3. ALBUTEROL [Concomitant]

REACTIONS (1)
  - CONVULSION [None]
